FAERS Safety Report 21116350 (Version 2)
Quarter: 2022Q3

REPORT INFORMATION
  Report Type: Spontaneous
  Country: US (occurrence: US)
  Receive Date: 20220721
  Receipt Date: 20220726
  Transmission Date: 20221027
  Serious: No
  Sender: FDA-Public Use
  Company Number: US-ORGANON-O2207USA001507

PATIENT
  Age: 35 Year
  Sex: Female

DRUGS (4)
  1. PREGNYL [Suspect]
     Active Substance: CHORIOGONADOTROPIN ALFA
     Dosage: UNK
     Route: 030
     Dates: start: 20220713, end: 20220713
  2. PREGNYL [Suspect]
     Active Substance: CHORIOGONADOTROPIN ALFA
     Dosage: UNK
     Route: 030
  3. STERILE WATER [Suspect]
     Active Substance: WATER
     Dosage: UNK
     Route: 030
     Dates: start: 20220713, end: 20220713
  4. STERILE WATER [Suspect]
     Active Substance: WATER
     Dosage: UNK
     Route: 030

REACTIONS (3)
  - Product container issue [Recovered/Resolved]
  - Exposure via skin contact [Recovered/Resolved]
  - No adverse event [Unknown]

NARRATIVE: CASE EVENT DATE: 20220713
